FAERS Safety Report 5584419-1 (Version None)
Quarter: 2008Q1

REPORT INFORMATION
  Report Type: 
  Country: None (occurrence: None)
  Receive Date: 20080108
  Receipt Date: 20071228
  Transmission Date: 20080703
  Serious: Yes (Hospitalization)
  Sender: FDA-Public Use
  Company Number: ES-ELI_LILLY_AND_COMPANY-ES200801000548

PATIENT
  Age: 57 Year
  Sex: Female

DRUGS (9)
  1. FORTEO [Suspect]
     Indication: OSTEOPOROSIS
     Dosage: 20 UG, UNKNOWN
     Route: 058
     Dates: start: 20060608, end: 20071201
  2. CALCIUM [Concomitant]
     Dosage: UNK, UNKNOWN
     Route: 065
  3. FOLIC ACID [Concomitant]
     Dosage: UNK, UNKNOWN
     Route: 066
  4. PREDNISONE [Concomitant]
     Dosage: UNK, UNKNOWN
     Route: 065
  5. SINTROM [Concomitant]
     Dosage: UNK, UNKNOWN
     Route: 065
     Dates: end: 20071126
  6. OMEPRAZOLE [Concomitant]
     Dosage: UNK, UNKNOWN
     Route: 065
  7. HEPARIN [Concomitant]
     Dosage: UNK, UNKNOWN
     Route: 065
  8. MOTILIUM [Concomitant]
     Indication: HERNIA
     Dosage: UNK, UNKNOWN
     Route: 065
  9. GELOCATIL [Concomitant]
     Dosage: UNK, UNKNOWN
     Route: 065

REACTIONS (3)
  - ANAEMIA [None]
  - DISCOMFORT [None]
  - FATIGUE [None]
